FAERS Safety Report 6556558-X (Version None)
Quarter: 2010Q1

REPORT INFORMATION
  Report Type: 
  Country: None (occurrence: None)
  Receive Date: 20100128
  Receipt Date: 20100118
  Transmission Date: 20100710
  Serious: Yes (Other)
  Sender: FDA-Public Use
  Company Number: IN-PFIZER INC-2010007971

PATIENT
  Age: 3 Month
  Sex: Male

DRUGS (4)
  1. ENALAPRIL MALEATE [Suspect]
     Dosage: 0.3 MG/KG, 1X/DAY
  2. SPIRONOLACTONE [Suspect]
     Dosage: 1 MG/KG, 1X/DAY
  3. FUROSEMIDE [Suspect]
     Dosage: 1 MG/KG, 1X/DAY
  4. DIGOXIN [Suspect]
     Dosage: 10 UG/KG, 1X/DAY

REACTIONS (6)
  - ATRIOVENTRICULAR DISSOCIATION [None]
  - DIARRHOEA [None]
  - ELECTROCARDIOGRAM T WAVE PEAKED [None]
  - RENAL FAILURE ACUTE [None]
  - THERAPEUTIC AGENT TOXICITY [None]
  - VENTRICULAR EXTRASYSTOLES [None]
